FAERS Safety Report 20991810 (Version 1)
Quarter: 2022Q2

REPORT INFORMATION
  Report Type: Spontaneous
  Country: CA (occurrence: CA)
  Receive Date: 20220622
  Receipt Date: 20220622
  Transmission Date: 20220720
  Serious: Yes (Other)
  Sender: FDA-Public Use
  Company Number: None

PATIENT
  Age: 64 Year
  Sex: Female

DRUGS (2)
  1. CISPLATIN [Suspect]
     Active Substance: CISPLATIN
     Indication: Small cell lung cancer
     Dosage: FREQUENCY: ONCE
     Route: 065
  2. ETOPOSIDE [Suspect]
     Active Substance: ETOPOSIDE
     Indication: Small cell lung cancer
     Route: 065

REACTIONS (7)
  - Hypomagnesaemia [Unknown]
  - Hyponatraemia [Unknown]
  - Hypovolaemia [Unknown]
  - Nausea [Unknown]
  - Orthostatic hypertension [Unknown]
  - Presyncope [Unknown]
  - Renal salt-wasting syndrome [Unknown]
